FAERS Safety Report 9332280 (Version 2)
Quarter: 2013Q2

REPORT INFORMATION
  Report Type: Report from Study
  Country: CA (occurrence: CA)
  Receive Date: 20130606
  Receipt Date: 20130625
  Transmission Date: 20140414
  Serious: Yes (Other)
  Sender: FDA-Public Use
  Company Number: CA-ROCHE-1219163

PATIENT
  Age: 49 Year
  Sex: Female
  Weight: 83 kg

DRUGS (3)
  1. AVASTIN [Suspect]
     Indication: GLIOBLASTOMA
     Route: 042
     Dates: start: 20130408, end: 20130522
  2. DECADRON [Concomitant]
     Route: 065
  3. LOMUSTINE [Concomitant]
     Route: 065
     Dates: start: 20130304

REACTIONS (5)
  - Neoplasm [Unknown]
  - Body temperature increased [Recovering/Resolving]
  - Chills [Unknown]
  - Dyspnoea exertional [Not Recovered/Not Resolved]
  - Fatigue [Unknown]
